FAERS Safety Report 8257366-4 (Version None)
Quarter: 2012Q1

REPORT INFORMATION
  Report Type: 
  Country: None (occurrence: None)
  Receive Date: 20120330
  Receipt Date: 20120330
  Transmission Date: 20120608
  Serious: Yes (Disabling)
  Sender: FDA-Public Use
  Company Number: None

PATIENT
  Age: 72 Year
  Sex: Female
  Weight: 58.9676 kg

DRUGS (4)
  1. CIPRO [Suspect]
     Indication: URINARY TRACT INFECTION
     Dosage: 500 MG 1X DAILY ORAL
     Route: 048
     Dates: start: 20120210
  2. CIPRO [Suspect]
     Indication: NEPHROLITHIASIS
     Dosage: 500 MG 1X DAILY ORAL
     Route: 048
     Dates: start: 20120210
  3. CIPRO [Suspect]
     Indication: URINARY TRACT INFECTION
     Dosage: 500 MG 1X DAILY ORAL
     Route: 048
     Dates: start: 20111223
  4. CIPRO [Suspect]
     Indication: NEPHROLITHIASIS
     Dosage: 500 MG 1X DAILY ORAL
     Route: 048
     Dates: start: 20111223

REACTIONS (2)
  - GAIT DISTURBANCE [None]
  - TENDON DISORDER [None]
